FAERS Safety Report 7716483-5 (Version None)
Quarter: 2011Q3

REPORT INFORMATION
  Report Type: 
  Country: None (occurrence: None)
  Receive Date: 20110829
  Receipt Date: 20110819
  Transmission Date: 20111222
  Serious: Yes (Hospitalization)
  Sender: FDA-Public Use
  Company Number: RU-ASTRAZENECA-2011SE50153

PATIENT
  Age: 63 Year
  Sex: Male
  Weight: 90 kg

DRUGS (1)
  1. MEROPENEM [Suspect]
     Indication: SUPERINFECTION
     Route: 042
     Dates: start: 20110707, end: 20110714

REACTIONS (2)
  - PYREXIA [None]
  - LUNG INFILTRATION [None]
